FAERS Safety Report 10608189 (Version 1)
Quarter: 2014Q4

REPORT INFORMATION
  Report Type: Spontaneous
  Country: SE (occurrence: SE)
  Receive Date: 20141125
  Receipt Date: 20141125
  Transmission Date: 20150529
  Serious: Yes (Other)
  Sender: FDA-Public Use
  Company Number: SE-TEVA-523367ISR

PATIENT
  Age: 60 Year
  Sex: Female

DRUGS (3)
  1. OXASCAND TEVA [Suspect]
     Active Substance: OXAZEPAM
     Dosage: 1 TABLET DAILY;
     Route: 048
  2. ATENOLOL TEVA [Suspect]
     Active Substance: ATENOLOL
     Dosage: 6 TABLET DAILY;
     Route: 048
  3. CORTISONE [Concomitant]
     Active Substance: CORTISONE\HYDROCORTISONE
     Indication: COLITIS ULCERATIVE
     Route: 048

REACTIONS (7)
  - Accidental overdose [Unknown]
  - Product packaging confusion [Unknown]
  - Discomfort [Unknown]
  - Insomnia [Unknown]
  - Withdrawal syndrome [Unknown]
  - Bradycardia [Unknown]
  - Dizziness [Unknown]

NARRATIVE: CASE EVENT DATE: 201411
